FAERS Safety Report 6503184-4 (Version None)
Quarter: 2009Q4

REPORT INFORMATION
  Report Type: 
  Country: None (occurrence: None)
  Receive Date: 20091217
  Receipt Date: 20091208
  Transmission Date: 20100525
  Serious: Yes (Hospitalization, Other)
  Sender: FDA-Public Use
  Company Number: JP-JNJFOC-20091204238

PATIENT
  Age: 4 Year
  Sex: Male
  Weight: 19.2 kg

DRUGS (2)
  1. HALOPERIDOL [Suspect]
     Indication: DRUG USE FOR UNKNOWN INDICATION
     Route: 065
  2. UNSPECIFIED DRUGS USED FOR COMMON COLD [Suspect]
     Indication: DRUG USE FOR UNKNOWN INDICATION
     Route: 065

REACTIONS (14)
  - ACCIDENTAL DRUG INTAKE BY CHILD [None]
  - ACCIDENTAL OVERDOSE [None]
  - APHONIA [None]
  - DRUG PRESCRIBING ERROR [None]
  - DRUG TOXICITY [None]
  - DYSARTHRIA [None]
  - DYSTONIA [None]
  - MUSCLE CONTRACTURE [None]
  - MUSCLE RIGIDITY [None]
  - NECK PAIN [None]
  - PARKINSONISM [None]
  - TORTICOLLIS [None]
  - TREMOR [None]
  - TRISMUS [None]
